FAERS Safety Report 6602029-1 (Version None)
Quarter: 2010Q1

REPORT INFORMATION
  Report Type: 
  Country: None (occurrence: None)
  Receive Date: 20100225
  Receipt Date: 20100215
  Transmission Date: 20100710
  Serious: Yes (Life-Threatening, Hospitalization)
  Sender: FDA-Public Use
  Company Number: GB-WATSON-2010-02008

PATIENT
  Age: 35 Year
  Sex: Female

DRUGS (7)
  1. LIDOCAINE HCL W/ EPINEPHRINE [Suspect]
     Indication: ANAESTHESIA
     Dosage: 100MG / 60 MCG, TOTAL
     Route: 045
  2. LIDOCAINE HCL W/ EPINEPHRINE [Suspect]
     Dosage: 1 MG, 4TOTAL
     Route: 040
  3. EPINEPHRINE [Suspect]
     Indication: ANAESTHESIA
     Dosage: 1 MG, 4 TOTAL
     Route: 042
  4. AMIODARONE [Suspect]
     Indication: HYPOTENSION
     Dosage: 300 MG, TOTAL
     Route: 065
  5. COCAINE [Suspect]
     Indication: ANAESTHESIA
     Dosage: 250 MG, TOTAL
     Route: 045
  6. ONDANSETRON [Suspect]
     Indication: DRUG USE FOR UNKNOWN INDICATION
     Dosage: 4 MG, TOTAL
     Route: 042
  7. SEVOFLURANE [Suspect]
     Indication: MAINTENANCE OF ANAESTHESIA
     Dosage: 2-3%
     Route: 055

REACTIONS (7)
  - APNOEA [None]
  - BRADYCARDIA [None]
  - CARDIAC ARREST [None]
  - HYPOTENSION [None]
  - LONG QT SYNDROME [None]
  - VENTRICULAR FIBRILLATION [None]
  - VENTRICULAR TACHYCARDIA [None]
